FAERS Safety Report 17488227 (Version 2)
Quarter: 2020Q2

REPORT INFORMATION
  Report Type: Spontaneous
  Country: UA (occurrence: UA)
  Receive Date: 20200303
  Receipt Date: 20200408
  Transmission Date: 20200713
  Serious: Yes (Other)
  Sender: FDA-Public Use
  Company Number: NVSC2020UA054828

PATIENT
  Age: 70 Year
  Sex: Female
  Weight: 85 kg

DRUGS (1)
  1. SIMBRINZA [Suspect]
     Active Substance: BRIMONIDINE TARTRATE\BRINZOLAMIDE
     Indication: GLAUCOMA
     Dosage: 1 GTT, BID
     Route: 057
     Dates: start: 20200220, end: 20200221

REACTIONS (5)
  - Eye pruritus [Recovering/Resolving]
  - Erythema of eyelid [Recovering/Resolving]
  - Product quality issue [Unknown]
  - Ocular hyperaemia [Recovering/Resolving]
  - Eye oedema [Recovering/Resolving]

NARRATIVE: CASE EVENT DATE: 20200221
